FAERS Safety Report 17757060 (Version 1)
Quarter: 2020Q2

REPORT INFORMATION
  Report Type: Spontaneous
  Country: DE (occurrence: DE)
  Receive Date: 20200507
  Receipt Date: 20200507
  Transmission Date: 20200714
  Serious: Yes (Other)
  Sender: FDA-Public Use
  Company Number: DE-PFIZER INC-2020139052

PATIENT
  Age: 32 Year
  Sex: Female

DRUGS (1)
  1. CYTOTEC [Suspect]
     Active Substance: MISOPROSTOL
     Indication: LABOUR INDUCTION
     Dosage: 1 TABLET, 2X/DAY (AT 10 AM AND AT 5 PM)
     Dates: start: 201805

REACTIONS (6)
  - Maternal exposure during pregnancy [Unknown]
  - Off label use [Unknown]
  - Foetal-maternal haemorrhage [Unknown]
  - Product use in unapproved indication [Unknown]
  - Uterine enlargement [Recovered/Resolved]
  - Uterine tachysystole [Unknown]

NARRATIVE: CASE EVENT DATE: 201805
